FAERS Safety Report 5598382-0 (Version None)
Quarter: 2008Q1

REPORT INFORMATION
  Report Type: 
  Country: None (occurrence: None)
  Receive Date: 20080122
  Receipt Date: 20080108
  Transmission Date: 20080703
  Serious: Yes (Other)
  Sender: FDA-Public Use
  Company Number: US-AMGEN-US261029

PATIENT
  Age: 16 Year
  Sex: Female

DRUGS (1)
  1. ENBREL [Suspect]
     Indication: JUVENILE ARTHRITIS
     Dosage: UNKNOWN, GREATER THAN 2 YEARS
     Route: 065

REACTIONS (10)
  - ALOPECIA [None]
  - ANTINUCLEAR ANTIBODY POSITIVE [None]
  - CARDIOLIPIN ANTIBODY POSITIVE [None]
  - CHRONIC OBSTRUCTIVE PULMONARY DISEASE [None]
  - CONDITION AGGRAVATED [None]
  - DNA ANTIBODY POSITIVE [None]
  - GLOMERULONEPHRITIS [None]
  - JUVENILE ARTHRITIS [None]
  - RESTRICTIVE PULMONARY DISEASE [None]
  - SYSTEMIC LUPUS ERYTHEMATOSUS [None]
